FAERS Safety Report 9562176 (Version 1)
Quarter: 2013Q3

REPORT INFORMATION
  Report Type: Spontaneous
  Country: US (occurrence: US)
  Receive Date: 20130927
  Receipt Date: 20130927
  Transmission Date: 20140515
  Serious: No
  Sender: FDA-Public Use
  Company Number: US-BAYER-2013-116626

PATIENT
  Age: 82 Year
  Sex: Male
  Weight: 91.61 kg

DRUGS (1)
  1. ALEVE CAPLET [Suspect]
     Indication: BACK PAIN
     Dosage: 1 DF, BID
     Route: 048

REACTIONS (2)
  - Liver function test abnormal [None]
  - Incorrect drug administration duration [None]
